FAERS Safety Report 21985772 (Version 3)
Quarter: 2023Q4

REPORT INFORMATION
  Report Type: Report from Study
  Country: JP (occurrence: JP)
  Receive Date: 20230213
  Receipt Date: 20231005
  Transmission Date: 20240109
  Serious: Yes (Other)
  Sender: FDA-Public Use
  Company Number: JP-BRISTOL-MYERS SQUIBB COMPANY-2022-116778

PATIENT
  Age: 63 Year
  Sex: Male
  Weight: 75 kg

DRUGS (4)
  1. BREYANZI [Suspect]
     Active Substance: LISOCABTAGENE MARALEUCEL
     Indication: Diffuse large B-cell lymphoma
     Dosage: CD4-POSITIVE LYMPHOCYTES AND CD8-POSITIVE LYMPHOCYTES WERE ADMINISTERED.
     Route: 042
     Dates: start: 20211210, end: 20211210
  2. TOCILIZUMAB [Concomitant]
     Active Substance: TOCILIZUMAB
     Indication: Prophylaxis
     Dates: start: 20211206
  3. FLUDARABINE [Concomitant]
     Active Substance: FLUDARABINE PHOSPHATE
     Indication: Lymphodepletion
     Dosage: TOTAL DOSE 90MG/M^2
     Dates: start: 20211206, end: 20211206
  4. CYCLOPHOSPHAMIDE [Concomitant]
     Active Substance: CYCLOPHOSPHAMIDE
     Indication: Lymphodepletion
     Dosage: TOTAL DOSE 900MG/M^2
     Dates: start: 20211206, end: 20211206

REACTIONS (9)
  - White blood cell count decreased [Unknown]
  - Platelet count decreased [Recovered/Resolved]
  - Anaemia [Recovering/Resolving]
  - Cytokine release syndrome [Recovered/Resolved]
  - Hypogammaglobulinaemia [Not Recovered/Not Resolved]
  - C-reactive protein increased [Unknown]
  - Pseudomonas infection [Unknown]
  - Neutrophil count decreased [Recovered/Resolved]
  - Sinusitis bacterial [Unknown]

NARRATIVE: CASE EVENT DATE: 20211210
